FAERS Safety Report 16668300 (Version 1)
Quarter: 2019Q3

REPORT INFORMATION
  Report Type: Spontaneous
  Country: US (occurrence: US)
  Receive Date: 20190620
  Receipt Date: 20190620
  Transmission Date: 20191004
  Serious: Yes (Other)
  Sender: FDA-Public Use
  Company Number: None

PATIENT

DRUGS (1)
  1. CREST 3D WHITE WHITESTRIPS DENTAL WHITENING KIT, VERSION UNKNOWN [Suspect]
     Active Substance: HYDROGEN PEROXIDE
     Route: 031

REACTIONS (1)
  - Tooth fracture [None]

NARRATIVE: CASE EVENT DATE: 2017
